FAERS Safety Report 25468355 (Version 2)
Quarter: 2025Q3

REPORT INFORMATION
  Report Type: Spontaneous
  Country: EU (occurrence: EU)
  Receive Date: 20250623
  Receipt Date: 20250712
  Transmission Date: 20251020
  Serious: Yes (Other)
  Sender: CELLTRION
  Company Number: EU-ROCHE-10000189204

PATIENT

DRUGS (1)
  1. TRUXIMA [Suspect]
     Active Substance: RITUXIMAB-ABBS
     Indication: Glomerulonephritis membranous
     Dosage: 1 G, EVERY 2 WEEKS (MAINTENANCE THERAPY OF 500 MG EVERY 6 MONTHS.)
     Route: 065
     Dates: start: 202312, end: 202401

REACTIONS (2)
  - Nephrotic syndrome [Unknown]
  - Off label use [Unknown]

NARRATIVE: CASE EVENT DATE: 20241201
